FAERS Safety Report 23874423 (Version 1)
Quarter: 2024Q2

REPORT INFORMATION
  Report Type: Spontaneous
  Country: US (occurrence: US)
  Receive Date: 20240520
  Receipt Date: 20240520
  Transmission Date: 20240716
  Serious: No
  Sender: FDA-Public Use
  Company Number: US-PFIZER INC-PV202400064274

PATIENT
  Age: 55 Year
  Sex: Female

DRUGS (1)
  1. ZAVZPRET [Suspect]
     Active Substance: ZAVEGEPANT HYDROCHLORIDE
     Indication: Headache
     Dosage: 10 MG, AS NEEDED (10 MG INTO EACH NOSTRIL DAILY AS NEEDED)

REACTIONS (2)
  - Oropharyngeal discomfort [Unknown]
  - Off label use [Unknown]
